FAERS Safety Report 19286147 (Version 1)
Quarter: 2021Q2

REPORT INFORMATION
  Report Type: Spontaneous
  Country: RU (occurrence: RU)
  Receive Date: 20210521
  Receipt Date: 20210521
  Transmission Date: 20210717
  Serious: Yes (Other)
  Sender: FDA-Public Use
  Company Number: RU-JNJFOC-20210522405

PATIENT
  Age: 54 Year
  Sex: Female

DRUGS (2)
  1. UPTRAVI [Suspect]
     Active Substance: SELEXIPAG
     Indication: PULMONARY HYPERTENSION
     Dosage: 200 CG TAB / INTERNAL, 200 CG (1 TAB) AT 9:00, 200 CG (1 TAB) AT 21:00?START : 2 WEEKS AGO
     Route: 048
     Dates: start: 202104
  2. UPTRAVI [Suspect]
     Active Substance: SELEXIPAG
     Indication: COR PULMONALE

REACTIONS (6)
  - Headache [Not Recovered/Not Resolved]
  - Muscular weakness [Not Recovered/Not Resolved]
  - Pulmonary hypertension [Not Recovered/Not Resolved]
  - Nausea [Not Recovered/Not Resolved]
  - Breast pain [Not Recovered/Not Resolved]
  - Vomiting [Not Recovered/Not Resolved]

NARRATIVE: CASE EVENT DATE: 2021
